FAERS Safety Report 6051362-3 (Version None)
Quarter: 2009Q1

REPORT INFORMATION
  Report Type: 
  Country: None (occurrence: None)
  Receive Date: 20090126
  Receipt Date: 20090114
  Transmission Date: 20090719
  Serious: Yes (Hospitalization)
  Sender: FDA-Public Use
  Company Number: JP-PFIZER INC-2008157511

PATIENT

DRUGS (9)
  1. SUNITINIB MALATE [Suspect]
     Indication: GASTROINTESTINAL STROMAL TUMOUR
     Dosage: 50 MG, 1X/DAY
     Route: 048
     Dates: start: 20081003
  2. PARIET [Concomitant]
     Dosage: UNK
     Route: 048
  3. MAGNESIUM OXIDE [Concomitant]
     Dosage: UNK
     Route: 048
  4. GASMOTIN [Concomitant]
     Dosage: UNK
     Route: 048
  5. LAC B [Concomitant]
     Dosage: UNK
     Route: 048
  6. LASIX [Concomitant]
     Dosage: UNK
     Route: 048
  7. ADONA [Concomitant]
     Route: 048
     Dates: end: 20081101
  8. ONON [Concomitant]
     Dosage: UNK
     Route: 048
  9. CYANOCOBALAMIN [Concomitant]
     Dosage: UNK
     Route: 048

REACTIONS (2)
  - PLATELET COUNT DECREASED [None]
  - TUMOUR LYSIS SYNDROME [None]
